FAERS Safety Report 6129900-1 (Version None)
Quarter: 2009Q1

REPORT INFORMATION
  Report Type: 
  Country: None (occurrence: None)
  Receive Date: 20090323
  Receipt Date: 20090323
  Transmission Date: 20090719
  Serious: Yes (Other)
  Sender: FDA-Public Use
  Company Number: None

PATIENT
  Sex: Female
  Weight: 4.46 kg

DRUGS (1)
  1. AZITHROMYCIN [Suspect]
     Indication: UPPER RESPIRATORY TRACT INFECTION
     Dosage: Z-PACK COMPLETED AS INSTRUCTED FIVE DAYS IN JAN 09

REACTIONS (2)
  - MATERNAL DRUGS AFFECTING FOETUS [None]
  - PYLORIC STENOSIS [None]
